FAERS Safety Report 7475938-1 (Version None)
Quarter: 2011Q2

REPORT INFORMATION
  Report Type: 
  Country: None (occurrence: None)
  Receive Date: 20110504
  Receipt Date: 20110420
  Transmission Date: 20111010
  Serious: Yes (Other)
  Sender: FDA-Public Use
  Company Number: 1000020240

PATIENT
  Age: 40 Year
  Sex: Male
  Weight: 120 kg

DRUGS (9)
  1. LEXAPRO [Suspect]
     Dosage: 10 MG (10 MG,1 IN 1 D) ; 20 MG (20 MG,1 IN 1 D),ORAL
     Route: 048
     Dates: start: 20100601, end: 20101201
  2. LEXAPRO [Suspect]
     Dosage: 10 MG (10 MG,1 IN 1 D) ; 20 MG (20 MG,1 IN 1 D),ORAL
     Route: 048
     Dates: start: 20101201
  3. PANADOL (PARACETAOL) (PARACETAMOL) [Concomitant]
  4. NORVASC [Concomitant]
  5. LEXAPRO [Suspect]
     Dosage: 10 MG (10 MG,1 IN 1 D)
     Dates: start: 20090501, end: 20100301
  6. CASSIA (CINNAMOMUM VERUM) (CINNAMOMUM VERUM) [Concomitant]
  7. PERSAIC (PERSAIC) (PERSAIC) [Concomitant]
  8. ESCITALOPRAM [Suspect]
  9. SIMVASTATIN (SIMVASTATIN, SIMVASTATIN) (SIMVASTATIN, SIMVASTATIN) [Concomitant]

REACTIONS (4)
  - PERSONALITY CHANGE [None]
  - THINKING ABNORMAL [None]
  - WEIGHT INCREASED [None]
  - AGGRESSION [None]
